FAERS Safety Report 4681178-1 (Version None)
Quarter: 2005Q2

REPORT INFORMATION
  Report Type: 
  Country: None (occurrence: None)
  Receive Date: 20050602
  Receipt Date: 20050505
  Transmission Date: 20051028
  Serious: Yes (Hospitalization)
  Sender: FDA-Public Use
  Company Number: 2005SS000031

PATIENT
  Sex: Female

DRUGS (2)
  1. MYOBLOC [Suspect]
     Indication: DYSTONIA
     Dosage: SEE IMAGE
     Route: 030
     Dates: start: 20050125, end: 20050125
  2. MYOBLOC [Suspect]
     Indication: DYSTONIA
     Dosage: SEE IMAGE
     Route: 030
     Dates: start: 20050425, end: 20050425

REACTIONS (7)
  - ASTHENIA [None]
  - DEHYDRATION [None]
  - DRY MOUTH [None]
  - INFLUENZA LIKE ILLNESS [None]
  - LACRIMATION INCREASED [None]
  - NECK PAIN [None]
  - SHOULDER PAIN [None]
